FAERS Safety Report 4851531-1 (Version None)
Quarter: 2005Q4

REPORT INFORMATION
  Report Type: 
  Country: None (occurrence: None)
  Receive Date: 20051212
  Receipt Date: 20051013
  Transmission Date: 20060501
  Serious: Yes (Hospitalization)
  Sender: FDA-Public Use
  Company Number: FR-ROCHE-421071

PATIENT
  Age: 48 Year
  Sex: Male

DRUGS (5)
  1. PEGASYS [Suspect]
     Indication: HEPATITIS B
     Dosage: 1 DOSE PER.
     Route: 058
     Dates: start: 20050218, end: 20050606
  2. VIREAD [Suspect]
     Route: 048
     Dates: start: 20050218, end: 20050718
  3. EPIVIR [Concomitant]
     Dosage: THERAPY STOPPED IN FEB 2005 AND RESTARTED ON 18 JUL 05.
     Route: 048
     Dates: start: 19970701
  4. CRIXIVAN [Concomitant]
     Route: 048
     Dates: start: 19970701
  5. RETROVIR [Concomitant]
     Route: 048
     Dates: start: 19970701

REACTIONS (3)
  - ANAEMIA [None]
  - APLASIA PURE RED CELL [None]
  - NEUTROPENIA [None]
